FAERS Safety Report 5807667-1 (Version None)
Quarter: 2008Q3

REPORT INFORMATION
  Report Type: 
  Country: None (occurrence: None)
  Receive Date: 20080708
  Receipt Date: 20080701
  Transmission Date: 20090109
  Serious: Yes (Other)
  Sender: FDA-Public Use
  Company Number: 2008SP009056

PATIENT
  Age: 44 Year
  Sex: Male

DRUGS (6)
  1. TEMODAL [Suspect]
     Indication: GLIOBLASTOMA
     Dosage: 300 MG; PO, 300 MG; PO
     Route: 048
     Dates: start: 20080430, end: 20080503
  2. TEMODAL [Suspect]
     Indication: GLIOBLASTOMA
     Dosage: 300 MG; PO, 300 MG; PO
     Route: 048
     Dates: start: 20021201
  3. TRILEPTAL [Concomitant]
  4. DEPRAKINE /00228501/ [Concomitant]
  5. LANSOPRAZOLE [Concomitant]
  6. ZOFRAN [Concomitant]

REACTIONS (3)
  - ARTHRALGIA [None]
  - NAUSEA [None]
  - OSTEONECROSIS [None]
